FAERS Safety Report 18668232 (Version 3)
Quarter: 2025Q4

REPORT INFORMATION
  Report Type: Spontaneous
  Country: EU (occurrence: EU)
  Receive Date: 20201228
  Receipt Date: 20251004
  Transmission Date: 20260117
  Serious: Yes (Other)
  Sender: AUROBINDO
  Company Number: EU-TEVA-2020-FR-1860200

PATIENT
  Age: 43 Year
  Sex: Male

DRUGS (3)
  1. DOCETAXEL [Suspect]
     Active Substance: DOCETAXEL
     Indication: Adenocarcinoma gastric
     Dosage: UNK UNK, CYCLICAL
     Route: 042
  2. OXALIPLATIN [Suspect]
     Active Substance: OXALIPLATIN
     Indication: Adenocarcinoma gastric
     Dosage: UNK UNK, CYCLICAL
     Route: 042
  3. FLUOROURACIL [Suspect]
     Active Substance: FLUOROURACIL
     Indication: Adenocarcinoma gastric
     Dosage: UNK, CYCLICAL (5-FU FIRST REDUCED THEN STOPPED.)
     Route: 065

REACTIONS (7)
  - Neuropathy peripheral [Unknown]
  - Palmar-plantar erythrodysaesthesia syndrome [Unknown]
  - Inflammation [Unknown]
  - Rhabdomyolysis [Unknown]
  - Myositis [Recovering/Resolving]
  - Pain in extremity [Recovering/Resolving]
  - Oedema [Recovering/Resolving]
